FAERS Safety Report 17794671 (Version 3)
Quarter: 2020Q2

REPORT INFORMATION
  Report Type: Spontaneous
  Country: PR (occurrence: PR)
  Receive Date: 20200515
  Receipt Date: 20200526
  Transmission Date: 20200714
  Serious: Yes (Other)
  Sender: FDA-Public Use
  Company Number: PR-PFIZER INC-2020194386

PATIENT
  Age: 41 Year
  Sex: Female

DRUGS (1)
  1. LYRICA [Suspect]
     Active Substance: PREGABALIN
     Dosage: UNK

REACTIONS (8)
  - Fibromyalgia [Unknown]
  - Pituitary tumour [Unknown]
  - Hernia [Unknown]
  - Asthma [Unknown]
  - Thyroid disorder [Unknown]
  - Malaise [Unknown]
  - Cardiac failure [Unknown]
  - White blood cell count decreased [Unknown]
